APPROVED DRUG PRODUCT: METRONIDAZOLE
Active Ingredient: METRONIDAZOLE
Strength: 500MG/100ML
Dosage Form/Route: INJECTABLE;INJECTION
Application: N018907 | Product #001
Applicant: HIKMA PHARMACEUTICALS USA INC
Approved: Mar 30, 1984 | RLD: No | RS: No | Type: DISCN